FAERS Safety Report 10086996 (Version 2)
Quarter: 2014Q2

REPORT INFORMATION
  Report Type: Spontaneous
  Country: DE (occurrence: DE)
  Receive Date: 20140418
  Receipt Date: 20140418
  Transmission Date: 20141212
  Serious: Yes (Death, Other)
  Sender: FDA-Public Use
  Company Number: CHPA2014DE003974

PATIENT
  Age: 83 Year
  Sex: Male

DRUGS (11)
  1. SCOPODERM TTS [Suspect]
     Indication: SALIVARY HYPERSECRETION
     Dosage: 1 DF, Q72H
     Route: 062
     Dates: start: 20120927, end: 201401
  2. SCOPODERM TTS [Suspect]
     Indication: OFF LABEL USE
  3. L THYROXIN [Concomitant]
     Dosage: 50 UNK, UNK
  4. CLOPIDOGREL [Concomitant]
     Dosage: 75 UNK, UNK
  5. ZOLPIDEM TARTRATE [Concomitant]
     Dosage: 10 UNK, UNK
  6. PARACETAMOL [Concomitant]
     Dosage: UNK
  7. LANTUS [Concomitant]
     Dosage: UNK
  8. ACTRAPID//INSULIN HUMAN [Concomitant]
     Dosage: UNK
  9. MELPERON [Concomitant]
     Dosage: UNK
  10. CLOBETASOL PROPIONATE [Concomitant]
     Dosage: UNK
  11. PANTOPRAZOLE [Concomitant]
     Dosage: 40 UNK, UNK

REACTIONS (2)
  - Death [Fatal]
  - Pemphigoid [Unknown]
